FAERS Safety Report 6701781-4 (Version None)
Quarter: 2010Q2

REPORT INFORMATION
  Report Type: 
  Country: None (occurrence: None)
  Receive Date: 20100429
  Receipt Date: 20100426
  Transmission Date: 20101027
  Serious: Yes (Death)
  Sender: FDA-Public Use
  Company Number: IL-CELGENEUS-082-20785-10040401

PATIENT
  Age: 73 Year
  Sex: Male

DRUGS (3)
  1. THALIDOMIDE [Suspect]
     Indication: AMYLOIDOSIS
     Route: 048
  2. MELPHALAN HYDROCHLORIDE [Concomitant]
     Indication: AMYLOIDOSIS
     Route: 065
  3. PREDNISONE [Concomitant]
     Indication: AMYLOIDOSIS
     Route: 065

REACTIONS (2)
  - DISEASE PROGRESSION [None]
  - MULTI-ORGAN FAILURE [None]
